FAERS Safety Report 15887494 (Version 1)
Quarter: 2019Q1

REPORT INFORMATION
  Report Type: Spontaneous
  Country: CN (occurrence: CN)
  Receive Date: 20190130
  Receipt Date: 20190130
  Transmission Date: 20190417
  Serious: Yes (Hospitalization, Other)
  Sender: FDA-Public Use
  Company Number: CN-ROCHE-2251116

PATIENT
  Age: 55 Year
  Sex: Male
  Weight: 49 kg

DRUGS (4)
  1. FK-506 [Concomitant]
     Active Substance: TACROLIMUS
     Indication: PROPHYLAXIS AGAINST TRANSPLANT REJECTION
  2. SIMULECT [Concomitant]
     Active Substance: BASILIXIMAB
  3. CELLCEPT [Suspect]
     Active Substance: MYCOPHENOLATE MOFETIL\MYCOPHENOLATE MOFETIL HYDROCHLORIDE
     Indication: PROPHYLAXIS AGAINST TRANSPLANT REJECTION
     Route: 065
  4. METHYLPREDNISOLONE. [Concomitant]
     Active Substance: METHYLPREDNISOLONE
     Indication: PROPHYLAXIS AGAINST TRANSPLANT REJECTION
     Route: 065

REACTIONS (10)
  - Infection [Unknown]
  - Restlessness [Unknown]
  - Transplant failure [Unknown]
  - Delirium [Unknown]
  - Hyperkalaemia [Unknown]
  - Biliary drainage [Unknown]
  - Renal impairment [Unknown]
  - Blood pressure decreased [Unknown]
  - Coagulopathy [Unknown]
  - Oliguria [Unknown]
